FAERS Safety Report 7002617-7 (Version None)
Quarter: 2010Q3

REPORT INFORMATION
  Report Type: 
  Country: None (occurrence: None)
  Receive Date: 20100920
  Receipt Date: 20100701
  Transmission Date: 20110219
  Serious: No
  Sender: FDA-Public Use
  Company Number: US-ASTRAZENECA-2007UW25114

PATIENT
  Age: 20311 Day
  Sex: Female
  Weight: 356.5 kg

DRUGS (22)
  1. SEROQUEL [Suspect]
     Indication: DEPRESSION
     Dosage: 100-300 MG
     Route: 048
     Dates: start: 20010101
  2. SEROQUEL [Suspect]
     Route: 048
     Dates: start: 20011001, end: 20061201
  3. SEROQUEL [Suspect]
     Dosage: 25-100 MG
     Route: 048
     Dates: start: 20030101, end: 20070101
  4. ZOCOR [Concomitant]
     Route: 065
  5. BUMEX [Concomitant]
  6. LISINOPRIL [Concomitant]
     Route: 065
  7. VANDAMET [Concomitant]
  8. LASIX [Concomitant]
     Dosage: 40-80 MG
     Route: 065
  9. FLUCONAZOLE [Concomitant]
  10. LANTUS [Concomitant]
  11. MIRTAZAPINE [Concomitant]
  12. TRAZODONE HCL [Concomitant]
     Dosage: 100-150 MG
  13. ZAZOLE [Concomitant]
  14. FOLIC ACID [Concomitant]
     Route: 065
  15. ABILIFY [Concomitant]
     Dates: start: 20070101
  16. VALTREX [Concomitant]
  17. HYDROXYZINE [Concomitant]
  18. PROTONIX [Concomitant]
  19. GEODON [Concomitant]
     Dates: start: 20090101, end: 20100101
  20. LIPITOR [Concomitant]
  21. TEMAZEPAM [Concomitant]
  22. SPIRONOLACTONE [Concomitant]
     Dosage: 100-300 MG

REACTIONS (7)
  - BLOOD CHOLESTEROL INCREASED [None]
  - BLOOD TRIGLYCERIDES INCREASED [None]
  - DIABETIC COMPLICATION [None]
  - HYPERGLYCAEMIA [None]
  - HYPERLIPIDAEMIA [None]
  - OBESITY [None]
  - TYPE 2 DIABETES MELLITUS [None]
